FAERS Safety Report 8173963 (Version 2)
Quarter: 2014Q2

REPORT INFORMATION
  Report Type: Spontaneous
  Country: US (occurrence: US)
  Receive Date: 20111010
  Receipt Date: 20140516
  Transmission Date: 20141212
  Serious: Yes (Life-Threatening)
  Sender: FDA-Public Use
  Company Number: US-BAYER-2011-096029

PATIENT
  Age: 48 Year
  Sex: Female

DRUGS (7)
  1. YAZ [Suspect]
  2. YASMIN [Suspect]
  3. OCELLA [Suspect]
  4. LEXAPRO [Concomitant]
     Dosage: 10 MG, UNK
  5. ASTELIN [Concomitant]
  6. MAXALT [Concomitant]
     Dosage: 10 MG, UNK
  7. CITALOPRAM [Concomitant]
     Dosage: 20 MG, UNK

REACTIONS (8)
  - Pulmonary embolism [Recovered/Resolved]
  - Thrombosis [None]
  - Injury [Recovered/Resolved]
  - Pain [Recovered/Resolved]
  - Anxiety [None]
  - Emotional distress [None]
  - Anhedonia [None]
  - General physical health deterioration [None]
